FAERS Safety Report 6908500-7 (Version None)
Quarter: 2010Q3

REPORT INFORMATION
  Report Type: 
  Country: None (occurrence: None)
  Receive Date: 20100805
  Receipt Date: 20100726
  Transmission Date: 20110219
  Serious: Yes (Hospitalization, Other)
  Sender: FDA-Public Use
  Company Number: US-PFIZER INC-2010074110

PATIENT
  Sex: Female
  Weight: 77.098 kg

DRUGS (12)
  1. TOVIAZ [Suspect]
     Indication: HYPERTONIC BLADDER
     Dosage: 4 MG, 1X/DAY
     Dates: start: 20100421
  2. PLAVIX [Concomitant]
     Dosage: UNK
  3. SIMVASTATIN [Concomitant]
     Dosage: UNK
  4. METOPROLOL [Concomitant]
     Dosage: UNK
  5. SERTRALINE [Concomitant]
     Dosage: UNK
  6. CARBIDOPA AND LEVODOPA [Concomitant]
     Dosage: UNK
  7. REQUIP [Concomitant]
     Dosage: UNK
  8. ASCORBIC ACID [Concomitant]
     Dosage: UNK
  9. FISH OIL [Concomitant]
     Dosage: UNK
  10. VITAMIN B COMPLEX CAP [Concomitant]
     Dosage: UNK
  11. ACETYLSALICYLIC ACID [Concomitant]
     Dosage: 325 MG, UNK
  12. MAGNESIUM [Concomitant]
     Dosage: UNK

REACTIONS (1)
  - MASTECTOMY [None]
